FAERS Safety Report 18454313 (Version 2)
Quarter: 2020Q4

REPORT INFORMATION
  Report Type: Report from Study
  Country: US (occurrence: US)
  Receive Date: 20201102
  Receipt Date: 20201116
  Transmission Date: 20210114
  Serious: Yes (Other)
  Sender: FDA-Public Use
  Company Number: US-JNJFOC-20201042893

PATIENT
  Age: 57 Year
  Sex: Female
  Weight: 72.64 kg

DRUGS (14)
  1. PROZAC [Concomitant]
     Active Substance: FLUOXETINE HYDROCHLORIDE
     Indication: DEPRESSION
     Dates: start: 20201008, end: 20201022
  2. ASENAPINE. [Concomitant]
     Active Substance: ASENAPINE
     Indication: MAJOR DEPRESSION
     Route: 062
     Dates: start: 20201008, end: 20201018
  3. SPRAVATO [Suspect]
     Active Substance: ESKETAMINE
     Dosage: 84MG, 11 TOTAL DOSES
     Dates: start: 20200713, end: 20200824
  4. SPRAVATO [Suspect]
     Active Substance: ESKETAMINE
     Dosage: 28MG, 1 TOTAL DOSES
     Dates: start: 20200827, end: 20200827
  5. SPRAVATO [Suspect]
     Active Substance: ESKETAMINE
     Indication: DEPRESSION
     Dates: start: 20200522, end: 20200522
  6. SPRAVATO [Suspect]
     Active Substance: ESKETAMINE
     Dosage: 56MG, 1 TOTAL DOSES
     Dates: start: 20200702, end: 20200702
  7. SPRAVATO [Suspect]
     Active Substance: ESKETAMINE
     Dosage: 84MG, 3 TOTAL DOSES
     Dates: start: 20201013, end: 20201019
  8. NALTREXONE [Concomitant]
     Active Substance: NALTREXONE
     Indication: INTRUSIVE THOUGHTS
     Dates: start: 20201008, end: 20201022
  9. SPRAVATO [Suspect]
     Active Substance: ESKETAMINE
     Dosage: 56MG, 2 TOTAL DOSES
     Dates: start: 20200928, end: 20201001
  10. LYRICA [Concomitant]
     Active Substance: PREGABALIN
     Indication: ANXIETY
     Dates: start: 20201008, end: 20201022
  11. SPRAVATO [Suspect]
     Active Substance: ESKETAMINE
     Dosage: 84MG, 5 TOTAL DOSES
     Dates: start: 20200529, end: 20200622
  12. SPRAVATO [Suspect]
     Active Substance: ESKETAMINE
     Dosage: 84MG, 6 TOTAL DOSES
     Dates: start: 20200831, end: 20200924
  13. SPRAVATO [Suspect]
     Active Substance: ESKETAMINE
     Dosage: 28MG, 1 TOTAL DOSE
     Dates: start: 20201022, end: 20201022
  14. LYRICA [Concomitant]
     Active Substance: PREGABALIN
     Indication: PAIN
     Dates: start: 20201008, end: 20201022

REACTIONS (2)
  - Dissociation [Recovered/Resolved]
  - Post-traumatic stress disorder [Recovered/Resolved]

NARRATIVE: CASE EVENT DATE: 20201022
